FAERS Safety Report 11446865 (Version 1)
Quarter: 2015Q3

REPORT INFORMATION
  Report Type: Spontaneous
  Country: US (occurrence: US)
  Receive Date: 20150831
  Receipt Date: 20150831
  Transmission Date: 20151125
  Serious: No
  Sender: FDA-Public Use
  Company Number: US-ELI_LILLY_AND_COMPANY-US200808003045

PATIENT
  Age: 57 Year
  Sex: Male

DRUGS (1)
  1. CYMBALTA [Suspect]
     Active Substance: DULOXETINE HYDROCHLORIDE
     Indication: DEPRESSION
     Dosage: 30 MG, UNK
     Dates: start: 200806, end: 200807

REACTIONS (12)
  - Feeling abnormal [Unknown]
  - Loss of employment [Unknown]
  - Abnormal behaviour [Unknown]
  - Cold sweat [Unknown]
  - Irritability [Unknown]
  - Gambling [Recovered/Resolved]
  - Disturbance in attention [Unknown]
  - Sleep disorder [Unknown]
  - Chest discomfort [Unknown]
  - Tobacco user [Unknown]
  - Mania [Unknown]
  - Apathy [Unknown]

NARRATIVE: CASE EVENT DATE: 200806
